FAERS Safety Report 9012808 (Version 1)
Quarter: 2013Q1

REPORT INFORMATION
  Report Type: Spontaneous
  Country: US (occurrence: US)
  Receive Date: 20130114
  Receipt Date: 20130114
  Transmission Date: 20140127
  Serious: Yes (Death)
  Sender: FDA-Public Use
  Company Number: US-FRI-1000037737

PATIENT
  Age: 51 Year
  Sex: Female
  Weight: 39 kg

DRUGS (9)
  1. DALIRESP [Suspect]
     Indication: CHRONIC OBSTRUCTIVE PULMONARY DISEASE
     Dosage: 500 MCG
     Route: 048
  2. CLONAZEPAM [Concomitant]
  3. VENLAFAXINE [Concomitant]
  4. VITAMINS (NOS) [Concomitant]
  5. AMLODIPINE [Concomitant]
  6. VENTOLIN [Concomitant]
  7. PREDNISONE [Concomitant]
  8. ADVAIR [Concomitant]
  9. SPIRIVA [Concomitant]

REACTIONS (1)
  - Cardio-respiratory arrest [Fatal]
